FAERS Safety Report 7589448-4 (Version None)
Quarter: 2011Q3

REPORT INFORMATION
  Report Type: 
  Country: None (occurrence: None)
  Receive Date: 20110705
  Receipt Date: 20110628
  Transmission Date: 20111222
  Serious: Yes (Death)
  Sender: FDA-Public Use
  Company Number: US-BAYER-2011-055779

PATIENT
  Sex: Male

DRUGS (1)
  1. LEUKINE [Suspect]
     Indication: IMMUNODEFICIENCY
     Dosage: UNK
     Dates: start: 20091001, end: 20091101

REACTIONS (1)
  - UNEVALUABLE EVENT [None]
